FAERS Safety Report 5289095-3 (Version None)
Quarter: 2007Q1

REPORT INFORMATION
  Report Type: 
  Country: None (occurrence: None)
  Receive Date: 20070122
  Receipt Date: 20061019
  Transmission Date: 20070707
  Serious: Yes (Other)
  Sender: FDA-Public Use
  Company Number: PHEH2006US13145

PATIENT
  Age: 39 Year
  Sex: Female

DRUGS (1)
  1. SANDOSTATIN LAR [Suspect]
     Dosage: TIW, INJECTION NOS
     Dates: start: 20010101, end: 20060914

REACTIONS (4)
  - DEHYDRATION [None]
  - DEVICE BREAKAGE [None]
  - DIARRHOEA [None]
  - MEDICAL DEVICE COMPLICATION [None]
